FAERS Safety Report 24308043 (Version 5)
Quarter: 2025Q3

REPORT INFORMATION
  Report Type: Report from Study
  Country: US (occurrence: US)
  Receive Date: 20240911
  Receipt Date: 20250822
  Transmission Date: 20251020
  Serious: Yes (Hospitalization, Other)
  Sender: SUNOVION
  Company Number: US-SMPA-2024SPA001691AA

PATIENT
  Age: 73 Year
  Sex: Male

DRUGS (7)
  1. ORGOVYX [Suspect]
     Active Substance: RELUGOLIX
     Indication: Prostate cancer
     Route: 048
  2. ORGOVYX [Suspect]
     Active Substance: RELUGOLIX
     Dosage: 120 MG, QD
     Route: 048
     Dates: start: 20240207
  3. ERLEADA [Suspect]
     Active Substance: APALUTAMIDE
     Indication: Product used for unknown indication
  4. TICAGRELOR [Concomitant]
     Active Substance: TICAGRELOR
     Dosage: 90 MG, BID
  5. CARVEDILOL [Concomitant]
     Active Substance: CARVEDILOL
     Dosage: 3.25 MG, BID
  6. ATORVASTATIN [Concomitant]
     Active Substance: ATORVASTATIN
  7. LISINOPRIL [Concomitant]
     Active Substance: LISINOPRIL

REACTIONS (15)
  - Silent myocardial infarction [Unknown]
  - Atrioventricular block [Unknown]
  - Brain fog [Unknown]
  - Balance disorder [Unknown]
  - Herpes zoster [Unknown]
  - Electrocardiogram abnormal [Unknown]
  - Decreased appetite [Unknown]
  - Gait inability [Unknown]
  - Muscle atrophy [Unknown]
  - Weight decreased [Unknown]
  - Pain [Unknown]
  - Drug interaction [Unknown]
  - Fatigue [Unknown]
  - Bone pain [Unknown]
  - Diarrhoea [Unknown]
